FAERS Safety Report 20221160 (Version 1)
Quarter: 2021Q4

REPORT INFORMATION
  Report Type: Spontaneous
  Country: RO (occurrence: RO)
  Receive Date: 20211223
  Receipt Date: 20211223
  Transmission Date: 20220303
  Serious: Yes (Hospitalization, Other)
  Sender: FDA-Public Use
  Company Number: RO-JNJFOC-20211238259

PATIENT

DRUGS (10)
  1. PALIPERIDONE PALMITATE [Suspect]
     Active Substance: PALIPERIDONE PALMITATE
     Indication: Schizophrenia
     Dosage: MONTHLY INJECTION
     Route: 030
  2. PALIPERIDONE PALMITATE [Suspect]
     Active Substance: PALIPERIDONE PALMITATE
  3. PALIPERIDONE PALMITATE [Suspect]
     Active Substance: PALIPERIDONE PALMITATE
  4. RISPERDAL CONSTA [Suspect]
     Active Substance: RISPERIDONE
     Indication: Schizophrenia
     Dosage: BI-MONTHLY INJECTION
     Route: 030
  5. RISPERDAL CONSTA [Suspect]
     Active Substance: RISPERIDONE
  6. RISPERDAL CONSTA [Suspect]
     Active Substance: RISPERIDONE
  7. RISPERDAL CONSTA [Suspect]
     Active Substance: RISPERIDONE
  8. ARIPIPRAZOLE [Suspect]
     Active Substance: ARIPIPRAZOLE
     Indication: Schizophrenia
     Route: 065
  9. FLUPENTIXOL DIHYDROCHLORIDE [Suspect]
     Active Substance: FLUPENTIXOL DIHYDROCHLORIDE
     Indication: Schizophrenia
     Route: 065
  10. OLANZAPINE [Suspect]
     Active Substance: OLANZAPINE
     Indication: Schizophrenia
     Route: 065

REACTIONS (8)
  - Hospitalisation [Unknown]
  - Hyperprolactinaemia [Unknown]
  - Sexual dysfunction [Unknown]
  - Weight increased [Unknown]
  - Extrapyramidal disorder [Unknown]
  - Akathisia [Unknown]
  - Sedation [Unknown]
  - Treatment noncompliance [Unknown]
